FAERS Safety Report 5919716-0 (Version None)
Quarter: 2008Q4

REPORT INFORMATION
  Report Type: 
  Country: None (occurrence: None)
  Receive Date: 20081015
  Receipt Date: 20081009
  Transmission Date: 20090506
  Serious: Yes (Other)
  Sender: FDA-Public Use
  Company Number: US-B.I. PHARMACEUTICALS,INC./RIDGEFIELD-2008-BP-10057BP

PATIENT
  Sex: Male

DRUGS (5)
  1. FLOMAX [Suspect]
     Indication: MICTURITION DISORDER
     Dosage: .4MG
     Dates: start: 20080201, end: 20080220
  2. HYDROCODONE BITARTRATE [Concomitant]
  3. BLOOD PRSSURE MEDS [Concomitant]
  4. CHOLESTEROL MEDS [Concomitant]
  5. GOUT MEDS [Concomitant]

REACTIONS (2)
  - ROAD TRAFFIC ACCIDENT [None]
  - SYNCOPE [None]
